FAERS Safety Report 15846709 (Version 3)
Quarter: 2019Q2

REPORT INFORMATION
  Report Type: Spontaneous
  Country: KR (occurrence: KR)
  Receive Date: 20190121
  Receipt Date: 20190430
  Transmission Date: 20190711
  Serious: Yes (Other)
  Sender: FDA-Public Use
  Company Number: KR-ROCHE-2246257

PATIENT
  Age: 56 Year
  Sex: Female
  Weight: 61.9 kg

DRUGS (22)
  1. CARBOPLATIN. [Concomitant]
     Active Substance: CARBOPLATIN
     Route: 042
     Dates: start: 20170919, end: 20170919
  2. PERJETA [Suspect]
     Active Substance: PERTUZUMAB
     Dosage: SUBSEQUENT DOSE RECEIVED ON 12/OCT/2017, 02/NOV/2017, 23/NOV/2017 AND 14/DEC/2017
     Route: 065
     Dates: start: 20170919
  3. DEXAMETHASONE. [Concomitant]
     Active Substance: DEXAMETHASONE
     Route: 042
     Dates: start: 20170828
  4. CARBOPLATIN. [Concomitant]
     Active Substance: CARBOPLATIN
     Route: 042
     Dates: start: 20171214, end: 20171214
  5. TIRAMIDE [Concomitant]
     Route: 048
     Dates: start: 20170828
  6. HERCEPTIN [Suspect]
     Active Substance: TRASTUZUMAB
     Dosage: SUBSEQUENT DOSE RECEIVED ON 12/OCT/2017, 02/NOV/2017, 23/NOV/2017 AND 14/DEC/2017
     Route: 042
     Dates: start: 20170919
  7. HERCEPTIN [Suspect]
     Active Substance: TRASTUZUMAB
     Indication: BREAST CANCER
     Route: 042
     Dates: start: 20170828, end: 20171214
  8. DOCETAXEL. [Suspect]
     Active Substance: DOCETAXEL
     Indication: BREAST CANCER
     Dosage: SUBSEQUENT DOSE RECEIVED ON 19/SEP/2017, 12/OCT/2017, 02/NOV/2017, 23/NOV/2017 AND 14/DEC/2017
     Route: 065
     Dates: start: 20170828
  9. DEXAMETHASONE. [Concomitant]
     Active Substance: DEXAMETHASONE
     Route: 048
     Dates: start: 20170828
  10. ALOXI [Concomitant]
     Active Substance: PALONOSETRON HYDROCHLORIDE
     Route: 042
     Dates: start: 20170828
  11. CARBOPLATIN. [Concomitant]
     Active Substance: CARBOPLATIN
     Route: 042
     Dates: start: 20171012, end: 20171012
  12. PERJETA [Suspect]
     Active Substance: PERTUZUMAB
     Indication: BREAST CANCER
     Route: 065
     Dates: start: 20170828
  13. LOPMIN [Concomitant]
     Route: 048
     Dates: start: 20170828
  14. CHLORPHENIRAMIN [Concomitant]
     Active Substance: CHLORPHENIRAMINE MALEATE
     Route: 042
     Dates: start: 20170828
  15. TACENOL [Concomitant]
     Route: 048
     Dates: start: 20170828
  16. ACLOFEN [Concomitant]
     Route: 048
     Dates: start: 20170828
  17. CARBOPLATIN. [Concomitant]
     Active Substance: CARBOPLATIN
     Route: 042
     Dates: start: 20171123, end: 20171123
  18. CARBOPLATIN. [Concomitant]
     Active Substance: CARBOPLATIN
     Route: 042
     Dates: start: 20170828, end: 20170828
  19. CARBOPLATIN. [Concomitant]
     Active Substance: CARBOPLATIN
     Route: 042
     Dates: start: 20171102, end: 20171102
  20. GRASIN [Concomitant]
     Indication: NEUTROPENIA
     Route: 042
     Dates: start: 20170907
  21. LANSTON [Concomitant]
     Active Substance: LANSOPRAZOLE
     Route: 048
     Dates: start: 20170828
  22. METOCLOPRAMIDE. [Concomitant]
     Active Substance: METOCLOPRAMIDE
     Route: 048
     Dates: start: 20170828

REACTIONS (8)
  - Hypertonic bladder [Recovering/Resolving]
  - Upper respiratory tract infection [Recovered/Resolved]
  - Neutropenia [Recovered/Resolved]
  - Febrile neutropenia [Recovered/Resolved]
  - Neuropathy peripheral [Recovering/Resolving]
  - Urinary incontinence [Recovering/Resolving]
  - Decreased appetite [Recovering/Resolving]
  - Pyrexia [Recovered/Resolved]

NARRATIVE: CASE EVENT DATE: 20170907
